FAERS Safety Report 4991402-3 (Version None)
Quarter: 2006Q2

REPORT INFORMATION
  Report Type: 
  Country: None (occurrence: None)
  Receive Date: 20060501
  Receipt Date: 20060420
  Transmission Date: 20061013
  Serious: Yes (Hospitalization)
  Sender: FDA-Public Use
  Company Number: 200610522BYL

PATIENT
  Age: 77 Year
  Sex: Male
  Weight: 65 kg

DRUGS (5)
  1. ASPIRIN [Suspect]
     Indication: CEREBRAL INFARCTION
     Dosage: 100 MG, QD, ORAL
     Route: 048
     Dates: start: 20060105, end: 20060320
  2. ARICEPT [Concomitant]
  3. MEPTIN [Concomitant]
  4. DASEN [Concomitant]
  5. ULCERLMIN [Concomitant]

REACTIONS (1)
  - THROMBOCYTOPENIA [None]
